FAERS Safety Report 9831234 (Version 1)
Quarter: 2014Q1

REPORT INFORMATION
  Report Type: Spontaneous
  Country: US (occurrence: US)
  Receive Date: 20140121
  Receipt Date: 20140121
  Transmission Date: 20141002
  Serious: Yes (Death, Hospitalization)
  Sender: FDA-Public Use
  Company Number: US-JNJFOC-20140110515

PATIENT
  Age: 33 Year
  Sex: Female

DRUGS (7)
  1. ACETAMINOPHEN/DIPHENHYDRAMINE [Suspect]
     Indication: SUICIDE ATTEMPT
     Route: 048
  2. HYDROXYCHLOROQUINE [Suspect]
     Indication: SUICIDE ATTEMPT
     Route: 048
  3. METFORMIN [Suspect]
     Indication: SUICIDE ATTEMPT
     Route: 048
  4. HYDROXYZINE [Suspect]
     Indication: SUICIDE ATTEMPT
     Route: 048
  5. COCAINE [Suspect]
     Indication: SUICIDE ATTEMPT
     Route: 048
  6. ALPRAZOLAM [Suspect]
     Indication: SUICIDE ATTEMPT
     Route: 048
  7. PREGABALIN [Suspect]
     Indication: SUICIDE ATTEMPT
     Route: 048

REACTIONS (6)
  - Toxicity to various agents [Fatal]
  - Bundle branch block left [Unknown]
  - Unresponsive to stimuli [Unknown]
  - Respiratory depression [Unknown]
  - Bradycardia [Unknown]
  - Hypotension [Unknown]
